FAERS Safety Report 10359840 (Version 1)
Quarter: 2014Q3

REPORT INFORMATION
  Report Type: Spontaneous
  Country: US (occurrence: US)
  Receive Date: 20140804
  Receipt Date: 20140804
  Transmission Date: 20150326
  Serious: No
  Sender: FDA-Public Use
  Company Number: US-BAYER-2014-115740

PATIENT
  Age: 19 Year
  Sex: Female

DRUGS (1)
  1. MIRENA [Suspect]
     Active Substance: LEVONORGESTREL
     Indication: CONTRACEPTION
     Dosage: 25 MCG/24HR, CONT
     Route: 015
     Dates: start: 20140725

REACTIONS (2)
  - Abdominal pain lower [Recovering/Resolving]
  - Device physical property issue [None]

NARRATIVE: CASE EVENT DATE: 20140725
